FAERS Safety Report 5423295-4 (Version None)
Quarter: 2007Q3

REPORT INFORMATION
  Report Type: 
  Country: None (occurrence: None)
  Receive Date: 20070823
  Receipt Date: 20070817
  Transmission Date: 20080115
  Serious: Yes (Other)
  Sender: FDA-Public Use
  Company Number: PHBS2007JP13819

PATIENT

DRUGS (2)
  1. TEGRETOL [Suspect]
     Route: 048
  2. PHENYTOIN SODIUM CAP [Suspect]
     Route: 065

REACTIONS (1)
  - HAEMOLYTIC ANAEMIA [None]
